FAERS Safety Report 7391937 (Version 44)
Quarter: 2022Q3

REPORT INFORMATION
  Report Type: Report from Study
  Country: CA (occurrence: CA)
  Receive Date: 20100518
  Receipt Date: 20220923
  Transmission Date: 20221027
  Serious: Yes (Hospitalization, Other)
  Sender: FDA-Public Use
  Company Number: PHHY2010CA29379

PATIENT
  Age: 59 Year
  Sex: Male

DRUGS (8)
  1. SANDOSTATIN LAR DEPOT [Suspect]
     Active Substance: OCTREOTIDE ACETATE
     Indication: Pancreatic neuroendocrine tumour
     Dosage: 30 MG, QMO (EVERY 4 WEEKS)
     Route: 030
     Dates: start: 20100429, end: 20120425
  2. SANDOSTATIN LAR DEPOT [Suspect]
     Active Substance: OCTREOTIDE ACETATE
     Dosage: 30 MG, QMO
     Route: 030
  3. SANDOSTATIN LAR DEPOT [Suspect]
     Active Substance: OCTREOTIDE ACETATE
     Dosage: 60 MG, QMO (EVERY 4 WEEKS)
     Route: 030
     Dates: start: 20100429, end: 20120425
  4. SANDOSTATIN LAR DEPOT [Suspect]
     Active Substance: OCTREOTIDE ACETATE
     Dosage: 60 MG, Q4W
     Route: 030
     Dates: start: 20100429, end: 20120425
  5. SANDOSTATIN LAR DEPOT [Suspect]
     Active Substance: OCTREOTIDE ACETATE
     Dosage: 60 MG, QMO (EVERY 4 WEEKS)
     Route: 030
     Dates: start: 20120709
  6. SANDOSTATIN LAR DEPOT [Suspect]
     Active Substance: OCTREOTIDE ACETATE
     Dosage: 60 MG, QMO
     Route: 030
     Dates: start: 20120709
  7. VITAMIN B12 [Concomitant]
     Active Substance: CYANOCOBALAMIN
     Indication: Product used for unknown indication
     Dosage: UNK (WEEKLY FOR THREE WEEKS, THEN IT WILL BE ONCE A MONTH)
     Route: 065
     Dates: start: 20170727
  8. ATORVASTATIN [Concomitant]
     Active Substance: ATORVASTATIN
     Indication: Blood cholesterol
     Dosage: 40 MG, QD
     Route: 048
     Dates: start: 2017

REACTIONS (35)
  - Pleural effusion [Unknown]
  - Thyroid mass [Unknown]
  - Thrombosis [Unknown]
  - Hernia [Unknown]
  - Blood pressure diastolic decreased [Unknown]
  - Cataract [Unknown]
  - Rectal haemorrhage [Unknown]
  - Type 2 diabetes mellitus [Unknown]
  - Pulmonary thrombosis [Unknown]
  - Heart rate decreased [Unknown]
  - Abdominal pain [Unknown]
  - Nausea [Unknown]
  - Constipation [Unknown]
  - Diarrhoea [Unknown]
  - Abdominal distension [Unknown]
  - Injection site induration [Unknown]
  - Injection site haemorrhage [Unknown]
  - Blood pressure increased [Unknown]
  - Body temperature decreased [Unknown]
  - Nasopharyngitis [Recovering/Resolving]
  - Weight decreased [Unknown]
  - Cyst [Unknown]
  - Erythema [Unknown]
  - Swelling [Unknown]
  - Mass [Unknown]
  - Infection [Unknown]
  - Blood cholesterol increased [Unknown]
  - Hypoaesthesia [Unknown]
  - Pain [Unknown]
  - Heart rate increased [Unknown]
  - Needle issue [Unknown]
  - Injection site infection [Unknown]
  - Feeling hot [Unknown]
  - Flushing [Unknown]
  - Injection site mass [Unknown]

NARRATIVE: CASE EVENT DATE: 20100429
